FAERS Safety Report 9134366 (Version 1)
Quarter: 2013Q1

REPORT INFORMATION
  Report Type: Spontaneous
  Country: US (occurrence: US)
  Receive Date: 20130304
  Receipt Date: 20130304
  Transmission Date: 20140127
  Serious: No
  Sender: FDA-Public Use
  Company Number: US-TEVA-389292USA

PATIENT
  Sex: Female
  Weight: 113.5 kg

DRUGS (7)
  1. FENTORA [Suspect]
     Indication: MIGRAINE
     Dosage: 1-2 TIMES DAILY
     Route: 002
     Dates: start: 2009
  2. CELEXA [Concomitant]
     Dosage: 40 MILLIGRAM DAILY;
     Route: 048
  3. BUPROPION XL [Concomitant]
     Route: 048
  4. ABILIFY [Concomitant]
     Dosage: 5 MILLIGRAM DAILY;
     Route: 048
  5. VERAPAMIL [Concomitant]
     Dosage: 240 MILLIGRAM DAILY;
     Route: 048
  6. OXYCODONE [Concomitant]
     Dosage: 2 TABS BID
     Route: 048
  7. CLONAZEPAM [Concomitant]
     Route: 048

REACTIONS (1)
  - Dental caries [Not Recovered/Not Resolved]
